FAERS Safety Report 11560578 (Version 3)
Quarter: 2015Q4

REPORT INFORMATION
  Report Type: Spontaneous
  Country: US (occurrence: US)
  Receive Date: 20150916
  Receipt Date: 20151120
  Transmission Date: 20160304
  Serious: No
  Sender: FDA-Public Use
  Company Number: US-ELI_LILLY_AND_COMPANY-US200809006461

PATIENT
  Age: 78 Year
  Sex: Female

DRUGS (3)
  1. FORTEO [Suspect]
     Active Substance: TERIPARATIDE
     Dosage: 20 UG, QD
     Route: 058
     Dates: start: 2009
  2. FORTEO [Suspect]
     Active Substance: TERIPARATIDE
     Dosage: 20 UG, QD
     Route: 058
     Dates: start: 2011
  3. FORTEO [Suspect]
     Active Substance: TERIPARATIDE
     Dosage: 20 UG, QD
     Route: 058
     Dates: start: 201209

REACTIONS (17)
  - Limb discomfort [Unknown]
  - Fatigue [Unknown]
  - Injection site haemorrhage [Unknown]
  - Limb injury [Unknown]
  - Memory impairment [Unknown]
  - Injection site erythema [Not Recovered/Not Resolved]
  - General physical health deterioration [Unknown]
  - Angiopathy [Unknown]
  - Vascular injury [Unknown]
  - Pollakiuria [Unknown]
  - Joint injury [Unknown]
  - Injection site mass [Unknown]
  - Anxiety [Unknown]
  - Fall [Unknown]
  - Incorrect drug administration duration [Unknown]
  - Hearing impaired [Unknown]
  - Osteoporosis [Unknown]

NARRATIVE: CASE EVENT DATE: 20080924
